FAERS Safety Report 4677824-9 (Version None)
Quarter: 2005Q2

REPORT INFORMATION
  Report Type: 
  Country: None (occurrence: None)
  Receive Date: 20050531
  Receipt Date: 20050519
  Transmission Date: 20051028
  Serious: Yes (Other)
  Sender: FDA-Public Use
  Company Number: US-BRISTOL-MYERS SQUIBB COMPANY-12982690

PATIENT
  Age: 38 Year
  Sex: Female

DRUGS (5)
  1. SERZONE [Suspect]
     Indication: NERVOUSNESS
     Dates: start: 19800101, end: 19890101
  2. SERZONE [Suspect]
     Indication: DEPRESSION
     Dates: start: 19800101, end: 19890101
  3. PREMARIN [Concomitant]
  4. THYROID TAB [Concomitant]
     Dosage: DOSE VALUE:  10 TO 20 MG
  5. IRON SUPPLEMENT [Concomitant]

REACTIONS (5)
  - DEPRESSION [None]
  - EMOTIONAL DISTRESS [None]
  - HEPATIC ENZYME ABNORMAL [None]
  - HEPATITIS C [None]
  - LIVER DISORDER [None]
